FAERS Safety Report 5031801-7 (Version None)
Quarter: 2006Q2

REPORT INFORMATION
  Report Type: 
  Country: None (occurrence: None)
  Receive Date: 20060621
  Receipt Date: 20060609
  Transmission Date: 20061013
  Serious: Yes (Other)
  Sender: FDA-Public Use
  Company Number: US-BRISTOL-MYERS SQUIBB COMPANY-13407283

PATIENT
  Age: 36 Year
  Sex: Female

DRUGS (8)
  1. BUSPAR [Suspect]
  2. PEG-INTRON [Suspect]
     Indication: HEPATITIS C
     Route: 058
     Dates: start: 20060130
  3. RIBAVIRIN [Suspect]
     Indication: HEPATITIS C
     Route: 048
     Dates: start: 20060130
  4. LORAZEPAM [Suspect]
  5. ATENOLOL [Concomitant]
     Route: 048
  6. PROMETHAZINE + PHENYLEPHRINE [Concomitant]
     Dosage: 1 DOSAGE FORM = 5-6.25 MG/5 ML
     Route: 048
  7. PROTONIX [Concomitant]
     Route: 048
  8. ZYPREXA [Concomitant]
     Route: 048

REACTIONS (11)
  - ANAPHYLACTIC REACTION [None]
  - BACK PAIN [None]
  - DIZZINESS POSTURAL [None]
  - FACIAL PAIN [None]
  - HALLUCINATION [None]
  - HEADACHE [None]
  - INSOMNIA [None]
  - MENORRHAGIA [None]
  - NAUSEA [None]
  - PAIN [None]
  - VOMITING [None]
